FAERS Safety Report 7021017-7 (Version None)
Quarter: 2010Q3

REPORT INFORMATION
  Report Type: 
  Country: None (occurrence: None)
  Receive Date: 20100929
  Receipt Date: 20100920
  Transmission Date: 20110219
  Serious: Yes (Other)
  Sender: FDA-Public Use
  Company Number: US-PFIZER INC-2010119835

PATIENT
  Sex: Male
  Weight: 61.224 kg

DRUGS (5)
  1. LIPITOR [Suspect]
     Indication: ARTERIOSCLEROSIS
     Dosage: 5 MG, DAILY
     Route: 048
     Dates: start: 20050101
  2. ACETYLSALICYLIC ACID [Concomitant]
     Dosage: 81 MG, UNK
  3. ATENOLOL [Concomitant]
     Dosage: 25 MG, UNK
  4. FINASTERIDE [Concomitant]
     Dosage: 5 MG, UNK
  5. NIACIN [Concomitant]
     Dosage: 500 MG, UNK

REACTIONS (5)
  - ASTHENIA [None]
  - DIARRHOEA [None]
  - FATIGUE [None]
  - MUSCULAR WEAKNESS [None]
  - WEIGHT DECREASED [None]
